FAERS Safety Report 5081936-8 (Version None)
Quarter: 2006Q3

REPORT INFORMATION
  Report Type: 
  Country: None (occurrence: None)
  Receive Date: 20060807
  Receipt Date: 20060728
  Transmission Date: 20061208
  Serious: Yes (Life-Threatening)
  Sender: FDA-Public Use
  Company Number: 200610225BBE

PATIENT
  Age: 81 Year
  Sex: Male

DRUGS (8)
  1. GAMUNEX [Suspect]
     Indication: TOXIC EPIDERMAL NECROLYSIS
     Dosage: 38 MG/KG, TOTAL DAILY
  2. ALLOPURINOL [Concomitant]
  3. HYDROCHLORORTHIAZIDE [Concomitant]
  4. METOPROLOL [Concomitant]
  5. ATORVASTATIN CALCIUM [Concomitant]
  6. LEVOTHYROXINE SODIUM [Concomitant]
  7. RANITIDINE [Concomitant]
  8. PREDNISONE TAB [Concomitant]

REACTIONS (10)
  - ACUTE MYOCARDIAL INFARCTION [None]
  - BLOOD PRESSURE INCREASED [None]
  - DRUG INEFFECTIVE [None]
  - GOUTY ARTHRITIS [None]
  - HEART RATE INCREASED [None]
  - HYPOTHERMIA [None]
  - PULMONARY OEDEMA [None]
  - RESPIRATORY DISTRESS [None]
  - UPPER RESPIRATORY TRACT INFECTION [None]
  - URINARY TRACT INFECTION [None]
